FAERS Safety Report 24763111 (Version 1)
Quarter: 2024Q4

REPORT INFORMATION
  Report Type: Spontaneous
  Country: US (occurrence: US)
  Receive Date: 20241222
  Receipt Date: 20241222
  Transmission Date: 20250115
  Serious: No
  Sender: SANOFI AVENTIS
  Company Number: US-SA-2024SA377347

PATIENT
  Sex: Male
  Weight: 92.73 kg

DRUGS (1)
  1. DUPIXENT [Suspect]
     Active Substance: DUPILUMAB
     Indication: Illness
     Dosage: 600 MG 1X
     Route: 058

REACTIONS (3)
  - Weight decreased [Unknown]
  - Amnesia [Unknown]
  - Memory impairment [Unknown]
